FAERS Safety Report 7171818-X (Version None)
Quarter: 2010Q4

REPORT INFORMATION
  Report Type: 
  Country: None (occurrence: None)
  Receive Date: 20101217
  Receipt Date: 20101209
  Transmission Date: 20110411
  Serious: Yes (Other)
  Sender: FDA-Public Use
  Company Number: FR-ABBOTT-10P-056-0691127-00

PATIENT
  Sex: Female

DRUGS (3)
  1. HUMIRA [Suspect]
     Indication: PSORIATIC ARTHROPATHY
     Route: 058
     Dates: start: 20091023, end: 20100225
  2. ORENTIA [Suspect]
     Indication: PSORIATIC ARTHROPATHY
     Route: 042
     Dates: start: 20100428
  3. ENBREL [Suspect]
     Indication: PSORIATIC ARTHROPATHY
     Route: 058
     Dates: start: 20100225, end: 20100225

REACTIONS (15)
  - BACK PAIN [None]
  - BRONCHITIS [None]
  - CELLULITIS [None]
  - CHILLS [None]
  - EAR INFECTION [None]
  - GUTTATE PSORIASIS [None]
  - HEADACHE [None]
  - HYPERSENSITIVITY [None]
  - INFLUENZA [None]
  - MYALGIA [None]
  - PHARYNGITIS [None]
  - PSORIASIS [None]
  - PYREXIA [None]
  - RHINITIS [None]
  - SCLERITIS [None]
